FAERS Safety Report 14672441 (Version 1)
Quarter: 2018Q1

REPORT INFORMATION
  Report Type: Spontaneous
  Country: US (occurrence: US)
  Receive Date: 20180323
  Receipt Date: 20180323
  Transmission Date: 20180509
  Serious: Yes (Other)
  Sender: FDA-Public Use
  Company Number: US-AMGEN-USASP2018038581

PATIENT
  Sex: Female

DRUGS (1)
  1. NEULASTA [Suspect]
     Active Substance: PEGFILGRASTIM
     Indication: NON-HODGKIN^S LYMPHOMA RECURRENT
     Dosage: UNK
     Route: 065
     Dates: start: 2011, end: 2012

REACTIONS (7)
  - Hepatitis [Recovering/Resolving]
  - Gingival recession [Not Recovered/Not Resolved]
  - Off label use [Unknown]
  - Herpes zoster [Recovering/Resolving]
  - Osteoporosis [Not Recovered/Not Resolved]
  - Dry mouth [Unknown]
  - Bone pain [Recovering/Resolving]

NARRATIVE: CASE EVENT DATE: 2011
